FAERS Safety Report 12162844 (Version 3)
Quarter: 2016Q2

REPORT INFORMATION
  Report Type: Spontaneous
  Country: US (occurrence: US)
  Receive Date: 20160309
  Receipt Date: 20160620
  Transmission Date: 20160815
  Serious: Yes (Other)
  Sender: FDA-Public Use
  Company Number: US-PFIZER INC-2016145503

PATIENT
  Age: 48 Year
  Sex: Female

DRUGS (1)
  1. LIPITOR [Suspect]
     Active Substance: ATORVASTATIN CALCIUM
     Indication: BLOOD CHOLESTEROL ABNORMAL
     Dosage: 20 MG, DAILY (PER DAY)
     Route: 048
     Dates: start: 2002

REACTIONS (4)
  - Hepatic enzyme increased [Not Recovered/Not Resolved]
  - Hypertension [Not Recovered/Not Resolved]
  - Emotional distress [Not Recovered/Not Resolved]
  - Type 2 diabetes mellitus [Not Recovered/Not Resolved]

NARRATIVE: CASE EVENT DATE: 2002
